FAERS Safety Report 8873608 (Version 1)
Quarter: 2012Q4

REPORT INFORMATION
  Report Type: Report from Study
  Country: US (occurrence: US)
  Receive Date: 20121030
  Receipt Date: 20121030
  Transmission Date: 20130627
  Serious: No
  Sender: FDA-Public Use
  Company Number: US-ABBOTT-12P-163-0924437-00

PATIENT
  Sex: Female

DRUGS (2)
  1. LUPRON DEPOT 3.75 MG [Suspect]
     Indication: ANAEMIA
     Route: 030
     Dates: start: 201201
  2. LUPRON DEPOT 3.75 MG [Suspect]
     Indication: UTERINE LEIOMYOMA

REACTIONS (3)
  - Menstrual disorder [Not Recovered/Not Resolved]
  - Amenorrhoea [Not Recovered/Not Resolved]
  - Menstrual disorder [Not Recovered/Not Resolved]
